FAERS Safety Report 5001470-0 (Version None)
Quarter: 2006Q2

REPORT INFORMATION
  Report Type: 
  Country: None (occurrence: None)
  Receive Date: 20060512
  Receipt Date: 20060302
  Transmission Date: 20061013
  Serious: Yes (Hospitalization)
  Sender: FDA-Public Use
  Company Number: US-MERCK-0603USA00634

PATIENT
  Age: 69 Year
  Sex: Male
  Weight: 91 kg

DRUGS (6)
  1. VIOXX [Suspect]
     Indication: BACK PAIN
     Route: 048
     Dates: start: 20010101, end: 20030901
  2. CELEXA [Concomitant]
     Route: 065
  3. HYDROXYZINE HYDROCHLORIDE [Concomitant]
     Route: 065
  4. TETRACYCLINE [Concomitant]
     Route: 065
  5. ASPIRIN [Concomitant]
     Route: 048
  6. PRAZOSIN HYDROCHLORIDE [Concomitant]
     Route: 048
     Dates: end: 20031101

REACTIONS (11)
  - ANGINA UNSTABLE [None]
  - CHEST PAIN [None]
  - CORONARY ARTERY DISEASE [None]
  - CORONARY ARTERY STENOSIS [None]
  - DIASTOLIC DYSFUNCTION [None]
  - LEFT VENTRICULAR END-DIASTOLIC PRESSURE INCREASED [None]
  - MUSCULAR WEAKNESS [None]
  - MYALGIA [None]
  - SINUS BRADYCARDIA [None]
  - SYNCOPE [None]
  - VOMITING [None]
